FAERS Safety Report 5810444-9 (Version None)
Quarter: 2008Q3

REPORT INFORMATION
  Report Type: 
  Country: None (occurrence: None)
  Receive Date: 20080715
  Receipt Date: 20080703
  Transmission Date: 20090109
  Serious: Yes (Hospitalization)
  Sender: FDA-Public Use
  Company Number: FR-PFIZER INC-2008051268

PATIENT
  Sex: Female
  Weight: 52 kg

DRUGS (2)
  1. SU-011,248 [Suspect]
     Indication: BREAST CANCER
     Route: 048
  2. TRASTUZUMAB [Suspect]
     Indication: BREAST CANCER
     Route: 042

REACTIONS (1)
  - ANAL FISTULA [None]
